FAERS Safety Report 6023253-5 (Version None)
Quarter: 2008Q4

REPORT INFORMATION
  Report Type: 
  Country: None (occurrence: None)
  Receive Date: 20081230
  Receipt Date: 20081217
  Transmission Date: 20090506
  Serious: Yes (Hospitalization)
  Sender: FDA-Public Use
  Company Number: US-ELI_LILLY_AND_COMPANY-US200812003350

PATIENT
  Sex: Male
  Weight: 91.9 kg

DRUGS (9)
  1. BYETTA [Suspect]
     Indication: TYPE 2 DIABETES MELLITUS
     Dosage: 5 UG, 2/D
     Route: 058
     Dates: start: 20070718
  2. BYETTA [Suspect]
     Dosage: 10 UG, 2/D
     Route: 058
     Dates: end: 20081101
  3. MYFORTIC [Concomitant]
  4. PROGRAF [Concomitant]
  5. ALLOPURINOL [Concomitant]
  6. NORVASC [Concomitant]
  7. PREDNISONE [Concomitant]
  8. ACTONEL [Concomitant]
  9. COREG [Concomitant]

REACTIONS (3)
  - PANCREATITIS ACUTE [None]
  - RENAL FAILURE [None]
  - WEIGHT DECREASED [None]
